FAERS Safety Report 14839798 (Version 2)
Quarter: 2018Q2

REPORT INFORMATION
  Report Type: Report from Study
  Country: None (occurrence: CA)
  Receive Date: 20180503
  Receipt Date: 20180514
  Transmission Date: 20180711
  Serious: Yes (Death, Hospitalization)
  Sender: FDA-Public Use
  Company Number: CA-ABBVIE-18K-028-2304038-00

PATIENT
  Age: 75 Year
  Sex: Female
  Weight: 40.86 kg

DRUGS (1)
  1. HUMIRA [Suspect]
     Active Substance: ADALIMUMAB
     Indication: RHEUMATOID ARTHRITIS
     Route: 058
     Dates: start: 20120718

REACTIONS (7)
  - Parkinson^s disease [Unknown]
  - Gastrointestinal haemorrhage [Fatal]
  - Hypophagia [Fatal]
  - Hypoaesthesia [Not Recovered/Not Resolved]
  - Fractured coccyx [Unknown]
  - General physical health deterioration [Fatal]
  - Pain [Fatal]

NARRATIVE: CASE EVENT DATE: 201709
